FAERS Safety Report 23445792 (Version 1)
Quarter: 2024Q1

REPORT INFORMATION
  Report Type: Spontaneous
  Country: JP (occurrence: JP)
  Receive Date: 20240126
  Receipt Date: 20240126
  Transmission Date: 20240409
  Serious: Yes (Hospitalization)
  Sender: FDA-Public Use
  Company Number: JP-ELI_LILLY_AND_COMPANY-JP202401007359

PATIENT
  Age: 37 Year
  Sex: Female

DRUGS (5)
  1. OLANZAPINE [Suspect]
     Active Substance: OLANZAPINE
     Indication: Diabetes mellitus
     Route: 048
  2. OLANZAPINE [Suspect]
     Active Substance: OLANZAPINE
     Indication: Bipolar disorder
     Route: 048
  3. SODIUM GLUCOSE [Concomitant]
     Indication: Diabetes mellitus
     Dosage: COTRANSPORTER 2 (SGLT2) INHIBITOR
  4. SODIUM GLUCOSE [Concomitant]
     Indication: Diabetes mellitus
     Dosage: COTRANSPORTER 2 (SGLT2) INHIBITOR
  5. SODIUM GLUCOSE [Concomitant]
     Indication: Diabetes mellitus
     Dosage: SGLT2 INHIBITOR AND THREE MONTHS AFTER STARTING OLANZAPINE

REACTIONS (4)
  - COVID-19 [Unknown]
  - Diabetic ketoacidosis [Recovering/Resolving]
  - Weight decreased [Unknown]
  - Off label use [Unknown]
